FAERS Safety Report 20505139 (Version 1)
Quarter: 2022Q1

REPORT INFORMATION
  Report Type: Spontaneous
  Country: US (occurrence: US)
  Receive Date: 20220223
  Receipt Date: 20220223
  Transmission Date: 20220423
  Serious: Yes (Other)
  Sender: FDA-Public Use
  Company Number: US-GILEAD-2022-0570611

PATIENT
  Sex: Male

DRUGS (3)
  1. HARVONI [Suspect]
     Active Substance: LEDIPASVIR\SOFOSBUVIR
     Indication: Product used for unknown indication
     Route: 065
  2. PEPSIN [Concomitant]
     Active Substance: PEPSIN
  3. CARAFATE [Concomitant]
     Active Substance: SUCRALFATE

REACTIONS (2)
  - Hepatic cancer [Unknown]
  - Abdominal pain upper [Recovered/Resolved]
